FAERS Safety Report 13854217 (Version 3)
Quarter: 2018Q1

REPORT INFORMATION
  Report Type: Report from Study
  Country: US (occurrence: US)
  Receive Date: 20170809
  Receipt Date: 20180118
  Transmission Date: 20180508
  Serious: Yes (Death, Hospitalization)
  Sender: FDA-Public Use
  Company Number: US-ACTELION-A-US2017-149470

PATIENT
  Age: 62 Year
  Sex: Female

DRUGS (5)
  1. RENVELA [Concomitant]
     Active Substance: SEVELAMER CARBONATE
  2. OPSUMIT [Suspect]
     Active Substance: MACITENTAN
     Indication: PULMONARY ARTERIAL HYPERTENSION
     Dosage: 10 MG, QD
     Route: 048
     Dates: start: 20150603, end: 20170911
  3. SYNTHROID [Concomitant]
     Active Substance: LEVOTHYROXINE SODIUM
  4. ALBUTEROL SULFATE. [Concomitant]
     Active Substance: ALBUTEROL SULFATE
  5. MUCINEX DM [Concomitant]
     Active Substance: DEXTROMETHORPHAN HYDROBROMIDE\GUAIFENESIN

REACTIONS (22)
  - Respiratory failure [Fatal]
  - Hypotension [Not Recovered/Not Resolved]
  - Abdominal distension [Recovering/Resolving]
  - Pain in extremity [Not Recovered/Not Resolved]
  - Productive cough [Recovering/Resolving]
  - Pulmonary oedema [Not Recovered/Not Resolved]
  - Dyspnoea [Recovering/Resolving]
  - Haemoptysis [Not Recovered/Not Resolved]
  - Abdominal discomfort [Not Recovered/Not Resolved]
  - Vomiting [Recovered/Resolved]
  - Sleep apnoea syndrome [Not Recovered/Not Resolved]
  - Rash [Not Recovered/Not Resolved]
  - Pneumonia [Not Recovered/Not Resolved]
  - Pyrexia [Not Recovered/Not Resolved]
  - Abdominal pain [Not Recovered/Not Resolved]
  - Pulmonary congestion [Recovering/Resolving]
  - Abdominal cavity drainage [Recovered/Resolved]
  - Nasal congestion [Not Recovered/Not Resolved]
  - Limb injury [Not Recovered/Not Resolved]
  - Aspiration pleural cavity [Not Recovered/Not Resolved]
  - Heart rate increased [Not Recovered/Not Resolved]
  - Fluid retention [Recovering/Resolving]

NARRATIVE: CASE EVENT DATE: 20170101
